FAERS Safety Report 9270640 (Version 2)
Quarter: 2013Q2

REPORT INFORMATION
  Report Type: Spontaneous
  Country: US (occurrence: US)
  Receive Date: 20130503
  Receipt Date: 20130629
  Transmission Date: 20140414
  Serious: No
  Sender: FDA-Public Use
  Company Number: US-ASTRAZENECA-2013SE28522

PATIENT
  Age: 69 Year
  Sex: Female
  Weight: 61.2 kg

DRUGS (8)
  1. SYMBICORT [Suspect]
     Indication: CHRONIC OBSTRUCTIVE PULMONARY DISEASE
     Dosage: 320MCG BID
     Route: 055
     Dates: start: 2011
  2. SYMBICORT [Suspect]
     Indication: CHRONIC OBSTRUCTIVE PULMONARY DISEASE
     Dosage: 160/ 4.5 MCG, 2 PUFFS DAILY
     Route: 055
  3. ZESTORETIC [Suspect]
     Route: 048
  4. OXYGEN [Concomitant]
     Dosage: HS
  5. VENTOLIN [Concomitant]
  6. METFORMIN [Concomitant]
  7. LEXAPRO [Concomitant]
     Indication: DEPRESSION
  8. SIMVASTATIN [Concomitant]
     Indication: BLOOD CHOLESTEROL INCREASED

REACTIONS (4)
  - Dyspnoea [Unknown]
  - Dyspnoea [Unknown]
  - Intentional drug misuse [Unknown]
  - Intentional drug misuse [Unknown]
